FAERS Safety Report 9753507 (Version 1)
Quarter: 2013Q4

REPORT INFORMATION
  Report Type: Spontaneous
  Country: US (occurrence: US)
  Receive Date: 20131213
  Receipt Date: 20131213
  Transmission Date: 20140711
  Serious: No
  Sender: FDA-Public Use
  Company Number: US-TEVA-404841USA

PATIENT
  Age: 18 Year
  Sex: Female
  Weight: 61.29 kg

DRUGS (2)
  1. PARAGARD 380A [Suspect]
     Indication: CONTRACEPTION
     Route: 015
  2. PLAN B ONE-STEP [Suspect]
     Dates: start: 2013

REACTIONS (2)
  - Mood swings [Not Recovered/Not Resolved]
  - Feeling hot [Not Recovered/Not Resolved]
